FAERS Safety Report 23986601 (Version 1)
Quarter: 2024Q2

REPORT INFORMATION
  Report Type: Spontaneous
  Country: US (occurrence: None)
  Receive Date: 20240618
  Receipt Date: 20240618
  Transmission Date: 20240715
  Serious: No
  Sender: FDA-Public Use
  Company Number: None

PATIENT
  Age: 69 Year
  Sex: Female
  Weight: 118.84 kg

DRUGS (1)
  1. OTEZLA [Suspect]
     Active Substance: APREMILAST
     Indication: Psoriatic arthropathy
     Dosage: FREQUENCY : DAILY;?
     Route: 048
     Dates: start: 202207

REACTIONS (1)
  - Cardiac therapeutic procedure [None]
